FAERS Safety Report 9901273 (Version 1)
Quarter: 2014Q1

REPORT INFORMATION
  Report Type: Spontaneous
  Country: AT (occurrence: AT)
  Receive Date: 20140217
  Receipt Date: 20140217
  Transmission Date: 20141002
  Serious: Yes (Hospitalization)
  Sender: FDA-Public Use
  Company Number: AT-TEVA-462468ISR

PATIENT
  Age: 77 Year
  Sex: Male

DRUGS (8)
  1. ZOLPIDEM [Suspect]
  2. GALANTAMINE [Suspect]
  3. LAMOTRIGINE [Suspect]
  4. ACETYLSALICYL ACID [Concomitant]
  5. PANTOPRAZOL [Concomitant]
  6. ENALAPRIL HCT [Concomitant]
  7. VENLAFAXIN [Concomitant]
  8. ENALAPRIL [Concomitant]

REACTIONS (2)
  - Salivary hypersecretion [Recovering/Resolving]
  - Dysphagia [Recovering/Resolving]
